FAERS Safety Report 7980383-6 (Version None)
Quarter: 2011Q4

REPORT INFORMATION
  Report Type: 
  Country: None (occurrence: None)
  Receive Date: 20111214
  Receipt Date: 20111206
  Transmission Date: 20120403
  Serious: Yes (Other)
  Sender: FDA-Public Use
  Company Number: US-BAXTER-2011BH038779

PATIENT
  Age: 6 Year
  Sex: Female

DRUGS (3)
  1. HEPARIN SODIUM 1,000 UNITS AND SODIUM CHLORIDE 0.9% [Suspect]
     Indication: ANTICOAGULANT THERAPY
     Route: 065
  2. ASPIRIN [Suspect]
     Indication: ANTICOAGULANT THERAPY
     Route: 065
  3. DIPYRIDAMOLE [Suspect]
     Indication: ANTICOAGULANT THERAPY
     Route: 042

REACTIONS (1)
  - CEREBROVASCULAR ACCIDENT [None]
